FAERS Safety Report 9097791 (Version 2)
Quarter: 2013Q1

REPORT INFORMATION
  Report Type: Spontaneous
  Country: US (occurrence: US)
  Receive Date: 20130212
  Receipt Date: 20130326
  Transmission Date: 20140127
  Serious: Yes (Other)
  Sender: FDA-Public Use
  Company Number: US-PFIZER INC-2013051744

PATIENT
  Age: 68 Year
  Sex: Male

DRUGS (9)
  1. VIAGRA [Suspect]
     Indication: ERECTILE DYSFUNCTION
     Dosage: 100 MG, AS NEEDED
     Route: 048
     Dates: start: 20130202, end: 20130202
  2. VIAGRA [Suspect]
     Dosage: 100 MG, UNK
     Route: 048
     Dates: end: 20130204
  3. NEXIUM [Concomitant]
     Dosage: UNK
  4. OXYBUTYNIN [Concomitant]
     Indication: BLADDER DISORDER
     Dosage: UNK
  5. SIMVASTATIN [Concomitant]
     Indication: BLOOD CHOLESTEROL INCREASED
     Dosage: UNK
  6. METFORMIN [Concomitant]
     Indication: DIABETES MELLITUS
     Dosage: UNK
  7. ASPARTAME [Concomitant]
     Indication: ERECTILE DYSFUNCTION
     Dosage: 5 MG, UNK
  8. ASPARTAME [Concomitant]
     Dosage: 100 MG, 1 PO PRN
     Route: 048
     Dates: end: 20130204
  9. LYRICA [Concomitant]
     Dosage: 100 MG, 1 TID PRN
     Route: 048

REACTIONS (3)
  - Nocturnal dyspnoea [Recovered/Resolved]
  - Eyelid oedema [Recovered/Resolved]
  - Swelling face [Recovered/Resolved]
